FAERS Safety Report 7145794-X (Version None)
Quarter: 2010Q4

REPORT INFORMATION
  Report Type: 
  Country: None (occurrence: None)
  Receive Date: 20101208
  Receipt Date: 20101202
  Transmission Date: 20110411
  Serious: Yes (Other)
  Sender: FDA-Public Use
  Company Number: A0894794A

PATIENT
  Age: 61 Year
  Sex: Female

DRUGS (2)
  1. SUMATRIPTAN SUCCINATE [Suspect]
     Indication: MIGRAINE
     Dates: start: 20100617, end: 20100711
  2. DRAMAMINE [Concomitant]
     Indication: NAUSEA

REACTIONS (4)
  - DRUG INEFFECTIVE [None]
  - EYE HAEMORRHAGE [None]
  - PRODUCT QUALITY ISSUE [None]
  - VISUAL IMPAIRMENT [None]
